FAERS Safety Report 8762291 (Version 2)
Quarter: 2012Q4

REPORT INFORMATION
  Report Type: 
  Country: US (occurrence: US)
  Receive Date: 20120830
  Receipt Date: 20120919
  Transmission Date: 20130627
  Serious: Yes (Other)
  Sender: FDA-Public Use
  Company Number: US-PFIZER INC-2012211977

PATIENT
  Age: 61 Year
  Sex: Female
  Weight: 46.71 kg

DRUGS (4)
  1. LIPITOR [Suspect]
     Indication: BLOOD CHOLESTEROL INCREASED
     Dosage: 40 mg, 1x/day
     Route: 048
  2. CELEBREX [Suspect]
     Indication: RHEUMATOID ARTHRITIS
     Dosage: 200 mg, 2x/day
     Route: 048
  3. RELPAX [Suspect]
     Indication: MIGRAINE
     Dosage: 40 mg, 1x/day
     Route: 048
  4. NORVASC [Concomitant]
     Indication: HYPERTENSION
     Dosage: UNK

REACTIONS (11)
  - Fall [Unknown]
  - Joint injury [Unknown]
  - Myelopathy [Unknown]
  - Intervertebral disc disorder [Unknown]
  - Intervertebral disc protrusion [Unknown]
  - Drug ineffective [Unknown]
  - Drug ineffective [Unknown]
  - Pain in extremity [Unknown]
  - Neck pain [Unknown]
  - Malaise [Unknown]
  - Hypersensitivity [Unknown]
